FAERS Safety Report 23857338 (Version 1)
Quarter: 2024Q2

REPORT INFORMATION
  Report Type: Spontaneous
  Country: AU (occurrence: AU)
  Receive Date: 20240515
  Receipt Date: 20240515
  Transmission Date: 20240716
  Serious: Yes (Death, Hospitalization, Other)
  Sender: FDA-Public Use
  Company Number: AU-BRISTOL-MYERS SQUIBB COMPANY-2024-073005

PATIENT
  Age: 90 Year
  Sex: Female

DRUGS (3)
  1. APIXABAN [Suspect]
     Active Substance: APIXABAN
     Indication: Atrial fibrillation
     Route: 048
     Dates: start: 20220817, end: 20230126
  2. ASPIRIN [Suspect]
     Active Substance: ASPIRIN
     Indication: Myocardial ischaemia
  3. ASPIRIN [Suspect]
     Active Substance: ASPIRIN
     Indication: Stent placement

REACTIONS (3)
  - Haemorrhage intracranial [Fatal]
  - Urinary tract infection [Unknown]
  - Delirium [Unknown]

NARRATIVE: CASE EVENT DATE: 20230126
